FAERS Safety Report 7477310-7 (Version None)
Quarter: 2011Q2

REPORT INFORMATION
  Report Type: 
  Country: None (occurrence: None)
  Receive Date: 20110513
  Receipt Date: 20110505
  Transmission Date: 20111010
  Serious: No
  Sender: FDA-Public Use
  Company Number: US-BIOGENIDEC-2011BI000401

PATIENT
  Age: 26 Year
  Sex: Male

DRUGS (3)
  1. TYSABRI [Suspect]
     Route: 042
     Dates: start: 20110502
  2. AMANTADINE HCL [Concomitant]
     Indication: ASTHENIA
     Route: 048
  3. TYSABRI [Suspect]
     Indication: MULTIPLE SCLEROSIS
     Route: 042
     Dates: start: 20091007, end: 20101230

REACTIONS (4)
  - DIZZINESS [None]
  - NAUSEA [None]
  - HEADACHE [None]
  - ASTHENIA [None]
